FAERS Safety Report 21282788 (Version 1)
Quarter: 2022Q3

REPORT INFORMATION
  Report Type: Spontaneous
  Country: CA (occurrence: CA)
  Receive Date: 20220901
  Receipt Date: 20220901
  Transmission Date: 20221027
  Serious: Yes (Death, Hospitalization, Other)
  Sender: FDA-Public Use
  Company Number: CA-PFIZER INC-202201110356

PATIENT
  Age: 27 Year
  Sex: Female

DRUGS (8)
  1. LYRICA [Suspect]
     Active Substance: PREGABALIN
     Dosage: 1 DF, 2 EVERY 1 DAY
     Route: 065
  2. LYRICA [Suspect]
     Active Substance: PREGABALIN
     Dosage: 1 DF, 2 EVERY 1 DAY
     Route: 065
  3. LORAZEPAM [Suspect]
     Active Substance: LORAZEPAM
     Indication: Alcohol detoxification
     Dosage: 1 DF
     Route: 060
  4. NALTREXONE [Suspect]
     Active Substance: NALTREXONE
     Dosage: 1 DF, 1 EVERY 24 HOURS
     Route: 065
  5. ESCITALOPRAM OXALATE [Suspect]
     Active Substance: ESCITALOPRAM OXALATE
     Indication: Anxiety
     Dosage: 1 DF, 1 EVERY 24 HOURS
     Route: 048
  6. ESCITALOPRAM OXALATE [Suspect]
     Active Substance: ESCITALOPRAM OXALATE
     Dosage: UNK
     Route: 065
  7. PANTOPRAZOLE MAGNESIUM [Concomitant]
     Active Substance: PANTOPRAZOLE MAGNESIUM
     Dosage: 1 DF, 1 EVERY 24 HOURS
     Route: 065
  8. PANTOPRAZOLE MAGNESIUM [Concomitant]
     Active Substance: PANTOPRAZOLE MAGNESIUM
     Dosage: 1 DF, 1 EVERY 24 HOURS
     Route: 065

REACTIONS (5)
  - Overdose [Fatal]
  - Alcohol abuse [Fatal]
  - Completed suicide [Fatal]
  - Intentional self-injury [Fatal]
  - Suicide attempt [Fatal]
